FAERS Safety Report 14358441 (Version 1)
Quarter: 2018Q1

REPORT INFORMATION
  Report Type: Spontaneous
  Country: US (occurrence: US)
  Receive Date: 20180105
  Receipt Date: 20180105
  Transmission Date: 20180509
  Serious: No
  Sender: FDA-Public Use
  Company Number: US-SA-2017SA223569

PATIENT
  Sex: Female

DRUGS (2)
  1. DESONIDE. [Suspect]
     Active Substance: DESONIDE
     Indication: RASH
     Route: 065
  2. DUPIXENT [Suspect]
     Active Substance: DUPILUMAB
     Indication: DERMATITIS ATOPIC
     Route: 058
     Dates: start: 201708

REACTIONS (9)
  - Dry skin [Unknown]
  - Conjunctivitis [Unknown]
  - Pruritus [Unknown]
  - Condition aggravated [Unknown]
  - Rash [Unknown]
  - Burning sensation [Unknown]
  - Lacrimation increased [Unknown]
  - Scab [Unknown]
  - Erythema [Unknown]
